FAERS Safety Report 26105284 (Version 1)
Quarter: 2025Q4

REPORT INFORMATION
  Report Type: Spontaneous
  Country: CN (occurrence: None)
  Receive Date: 20251201
  Receipt Date: 20251201
  Transmission Date: 20260119
  Serious: Yes (Hospitalization)
  Sender: JIANGSU HANSOH PHARMACEUTICAL GROUP CO., LTD.
  Company Number: CN-Hansoh-20252190021898

PATIENT
  Sex: Male

DRUGS (12)
  1. PEMETREXED DISODIUM [Suspect]
     Active Substance: PEMETREXED DISODIUM
     Indication: Lung adenocarcinoma stage IV
     Dosage: 970MG,EVERY 3 WEEKS
     Route: 041
     Dates: start: 20250516, end: 20250516
  2. PEMETREXED DISODIUM [Suspect]
     Active Substance: PEMETREXED DISODIUM
     Dosage: 970MG,EVERY 3 WEEKS
     Route: 041
     Dates: start: 20250606, end: 20250606
  3. PEMETREXED DISODIUM [Suspect]
     Active Substance: PEMETREXED DISODIUM
     Dosage: 970MG,EVERY 3 WEEKS
     Route: 041
     Dates: start: 20250628, end: 20250628
  4. PEMETREXED DISODIUM [Suspect]
     Active Substance: PEMETREXED DISODIUM
     Dosage: 970MG,EVERY 3 WEEKS
     Route: 041
     Dates: start: 20250716, end: 20250716
  5. PEMETREXED DISODIUM [Suspect]
     Active Substance: PEMETREXED DISODIUM
     Dosage: 970MG,EVERY 3 WEEKS
     Route: 041
     Dates: start: 20250805, end: 20250805
  6. CARBOPLATIN [Suspect]
     Active Substance: CARBOPLATIN
     Indication: Lung adenocarcinoma stage IV
     Dosage: 750 MG
     Route: 041
     Dates: start: 20250516, end: 20250516
  7. CARBOPLATIN [Suspect]
     Active Substance: CARBOPLATIN
     Dosage: 696 MG, EVERY 3 WEEKS
     Route: 041
     Dates: start: 20250606, end: 20250606
  8. CARBOPLATIN [Suspect]
     Active Substance: CARBOPLATIN
     Dosage: 750 MG
     Route: 041
     Dates: start: 20250628, end: 20250628
  9. CARBOPLATIN [Suspect]
     Active Substance: CARBOPLATIN
     Dosage: 750 MG
     Route: 041
     Dates: start: 20250716, end: 20250716
  10. PEMBROLIZUMAB [Suspect]
     Active Substance: PEMBROLIZUMAB
     Indication: Lung adenocarcinoma stage IV
     Dosage: 400 MG, Q6W
     Route: 041
     Dates: start: 20250516, end: 20250516
  11. PEMBROLIZUMAB [Suspect]
     Active Substance: PEMBROLIZUMAB
     Dosage: 400 MG, Q6W
     Route: 041
     Dates: start: 20250628, end: 20250628
  12. PEMBROLIZUMAB [Suspect]
     Active Substance: PEMBROLIZUMAB
     Dosage: 400 MG, Q6W
     Route: 041
     Dates: start: 20250805, end: 20250805

REACTIONS (8)
  - Anal abscess [Recovering/Resolving]
  - Urinary occult blood positive [Not Recovered/Not Resolved]
  - Chest discomfort [Not Recovered/Not Resolved]
  - Hypoalbuminaemia [Not Recovered/Not Resolved]
  - Blood alkaline phosphatase increased [Not Recovered/Not Resolved]
  - Vulvitis [Not Recovered/Not Resolved]
  - Decreased appetite [Not Recovered/Not Resolved]
  - Anaemia [Not Recovered/Not Resolved]

NARRATIVE: CASE EVENT DATE: 20250605
